FAERS Safety Report 17183781 (Version 1)
Quarter: 2019Q4

REPORT INFORMATION
  Report Type: Spontaneous
  Country: JP (occurrence: JP)
  Receive Date: 20191220
  Receipt Date: 20191220
  Transmission Date: 20200122
  Serious: Yes (Hospitalization)
  Sender: FDA-Public Use
  Company Number: JP-MYLANLABS-2019M1123877

PATIENT
  Age: 48 Year
  Sex: Female
  Weight: 60 kg

DRUGS (7)
  1. AMOBANTES [Concomitant]
     Indication: PRODUCT USED FOR UNKNOWN INDICATION
     Route: 065
  2. MONTELUKAST [Concomitant]
     Active Substance: MONTELUKAST SODIUM
     Indication: NASOPHARYNGITIS
     Dosage: UNK
     Route: 048
     Dates: start: 20190909
  3. KLARICID TABLETS 200MG [Suspect]
     Active Substance: CLARITHROMYCIN
     Indication: NASOPHARYNGITIS
     Dosage: 1 DOSAGE FORM, QD
     Route: 048
     Dates: start: 20190909, end: 20190915
  4. RISPERIDONE. [Interacting]
     Active Substance: RISPERIDONE
     Indication: RESTLESSNESS
     Dosage: 3 DOSAGE FORM, QD
     Route: 048
     Dates: end: 20190916
  5. AKINETON [Concomitant]
     Active Substance: BIPERIDEN HYDROCHLORIDE
     Indication: PSYCHOMOTOR SKILLS IMPAIRED
     Route: 065
  6. MUCODYNE [Concomitant]
     Active Substance: CARBOCYSTEINE
     Indication: NASOPHARYNGITIS
     Dosage: UNK
     Route: 048
     Dates: start: 20190909
  7. CONTOMIN                           /00011906/ [Concomitant]
     Indication: RESTLESSNESS
     Route: 065

REACTIONS (2)
  - Neuroleptic malignant syndrome [Recovering/Resolving]
  - Drug interaction [Recovering/Resolving]

NARRATIVE: CASE EVENT DATE: 20190909
